FAERS Safety Report 20891075 (Version 1)
Quarter: 2022Q2

REPORT INFORMATION
  Report Type: Report from Study
  Country: TH (occurrence: TH)
  Receive Date: 20220530
  Receipt Date: 20220530
  Transmission Date: 20220721
  Serious: Yes (Death, Life-Threatening, Hospitalization)
  Sender: FDA-Public Use
  Company Number: TH-AstraZeneca-2022A038461

PATIENT
  Age: 69 Year
  Sex: Male
  Weight: 63 kg

DRUGS (12)
  1. TRASTUZUMAB DERUXTECAN [Suspect]
     Active Substance: TRASTUZUMAB DERUXTECAN
     Indication: HER2 mutant non-small cell lung cancer
     Dosage: 273 MG
     Route: 042
     Dates: start: 20220114, end: 20220114
  2. TRASTUZUMAB DERUXTECAN [Suspect]
     Active Substance: TRASTUZUMAB DERUXTECAN
     Indication: HER2 mutant non-small cell lung cancer
     Dosage: 102 MG
     Route: 042
     Dates: start: 20220114, end: 20220114
  3. DURVALUMAB [Suspect]
     Active Substance: DURVALUMAB
     Indication: HER2 mutant non-small cell lung cancer
     Dosage: 1120 MG
     Route: 042
     Dates: start: 20220114, end: 20220114
  4. TIOTROPIUM BROMIDE [Concomitant]
     Active Substance: TIOTROPIUM BROMIDE
     Indication: Chronic obstructive pulmonary disease
     Dosage: 1 CAPSULE EVERY OTHER DAY
     Route: 055
     Dates: start: 20210227
  5. ALLOPURINOL [Concomitant]
     Active Substance: ALLOPURINOL
     Indication: Gout
     Dosage: 300 MG
     Route: 048
     Dates: start: 2001
  6. DICLOFENAC [Concomitant]
     Active Substance: DICLOFENAC
     Indication: Gout
     Dosage: 25 MG
     Route: 048
     Dates: start: 2001
  7. FOLIC ACID [Concomitant]
     Active Substance: FOLIC ACID
     Indication: Gout
     Dosage: 1 DF
     Route: 048
     Dates: start: 2021
  8. VITAMIN B1-6-12 [Concomitant]
     Indication: Gout
     Dosage: 1 DF
     Route: 048
     Dates: start: 2001
  9. AKYNZEO [Concomitant]
     Indication: Nausea
     Dosage: 1 DF
     Route: 048
     Dates: start: 20220114, end: 20220114
  10. DEXAMETHASONE [Concomitant]
     Active Substance: DEXAMETHASONE
     Indication: Nausea
     Dosage: 12 MG
     Route: 042
     Dates: start: 20220114, end: 20220114
  11. DEXAMETHASONE [Concomitant]
     Active Substance: DEXAMETHASONE
     Dosage: 4 MG
     Route: 048
     Dates: start: 20220115, end: 20220116
  12. OLANZAPINE [Concomitant]
     Active Substance: OLANZAPINE
     Indication: Nausea
     Dosage: 5 MG
     Route: 048
     Dates: start: 20220115

REACTIONS (1)
  - Febrile neutropenia [Fatal]

NARRATIVE: CASE EVENT DATE: 20220120
